FAERS Safety Report 4811832-X (Version None)
Quarter: 2005Q4

REPORT INFORMATION
  Report Type: 
  Country: None (occurrence: None)
  Receive Date: 20051027
  Receipt Date: 20051027
  Transmission Date: 20060501
  Serious: Yes (Hospitalization)
  Sender: FDA-Public Use
  Company Number: None

PATIENT
  Age: 53 Year
  Sex: Male

DRUGS (1)
  1. LORATADINE [Suspect]
     Indication: MULTIPLE ALLERGIES
     Dosage: 10MG  QD PO
     Route: 048
     Dates: start: 20050820, end: 20050825

REACTIONS (2)
  - OEDEMA PERIPHERAL [None]
  - SLEEP APNOEA SYNDROME [None]
